FAERS Safety Report 5930833-1 (Version None)
Quarter: 2008Q4

REPORT INFORMATION
  Report Type: 
  Country: None (occurrence: None)
  Receive Date: 20081022
  Receipt Date: 20081009
  Transmission Date: 20090506
  Serious: Yes (Other)
  Sender: FDA-Public Use
  Company Number: 1000001386

PATIENT
  Age: 24 Year
  Sex: Female
  Weight: 69 kg

DRUGS (4)
  1. ESCITALOPRAM [Suspect]
     Indication: SCHIZOPHRENIA
     Dosage: 20 MG (20 MG, 1 IN 1 D), ORAL
     Route: 048
     Dates: start: 20071101
  2. SERTINDOLE (TABLETS) [Suspect]
     Dosage: 24 MG (24 MG, 1 IN 1 D), ORAL
     Route: 048
     Dates: start: 20071101
  3. LYRICA [Suspect]
     Indication: ANXIETY
     Dosage: ORAL; 450 MG (450 MG, 1 IN 1 D), ORAL
     Route: 048
     Dates: start: 20080826, end: 20080828
  4. LYRICA [Suspect]
     Indication: ANXIETY
     Dosage: ORAL; 450 MG (450 MG, 1 IN 1 D), ORAL
     Route: 048
     Dates: start: 20080829

REACTIONS (4)
  - ACCOMMODATION DISORDER [None]
  - ANXIETY [None]
  - BUCCOGLOSSAL SYNDROME [None]
  - DRUG INTERACTION [None]
